FAERS Safety Report 6894197-1 (Version None)
Quarter: 2010Q3

REPORT INFORMATION
  Report Type: 
  Country: None (occurrence: None)
  Receive Date: 20100802
  Receipt Date: 20100719
  Transmission Date: 20110219
  Serious: Yes (Hospitalization, Other)
  Sender: FDA-Public Use
  Company Number: PHHY2010FR48131

PATIENT
  Sex: Male

DRUGS (6)
  1. RASILEZ HCT [Suspect]
     Indication: HYPERTENSION
     Dosage: 1 DF, QD
     Route: 048
     Dates: start: 20100318, end: 20100527
  2. DOXYCYCLINE [Concomitant]
     Dosage: UNK
     Dates: start: 20100322
  3. TROSPIUM CHLORIDE [Concomitant]
  4. VASTAREL ^BIOPHARMA^ [Concomitant]
  5. STILNOX                                 /FRA/ [Concomitant]
  6. OMEPRAZOLE [Concomitant]

REACTIONS (3)
  - COUGH [None]
  - LUNG DISORDER [None]
  - RALES [None]
